FAERS Safety Report 20447321 (Version 1)
Quarter: 2022Q1

REPORT INFORMATION
  Report Type: Spontaneous
  Country: US (occurrence: US)
  Receive Date: 20220209
  Receipt Date: 20220209
  Transmission Date: 20220424
  Serious: Yes (Hospitalization)
  Sender: FDA-Public Use
  Company Number: US-NOVOPROD-889095

PATIENT
  Sex: Female

DRUGS (3)
  1. NOVOLOG [Suspect]
     Active Substance: INSULIN ASPART
     Indication: Product used for unknown indication
     Dosage: 4 UNITS SQ WITH EACH MEAL AND USES SLIDING SCALE 4-12 UNITS
     Route: 065
     Dates: start: 2018
  2. OZEMPIC [Suspect]
     Active Substance: SEMAGLUTIDE
     Indication: Product used for unknown indication
     Dosage: 0.5 MG, QW
     Route: 065
     Dates: start: 2020
  3. LEVEMIR [Suspect]
     Active Substance: INSULIN DETEMIR
     Indication: Product used for unknown indication
     Dosage: 23 IU, QD (IN THE AM)
     Route: 065
     Dates: start: 2021

REACTIONS (2)
  - Cardiac failure chronic [Unknown]
  - Pulmonary toxicity [Unknown]
